FAERS Safety Report 10595252 (Version 1)
Quarter: 2014Q4

REPORT INFORMATION
  Report Type: Spontaneous
  Country: US (occurrence: None)
  Receive Date: 20141118
  Receipt Date: 20141118
  Transmission Date: 20150529
  Serious: Yes (Other)
  Sender: FDA-Public Use
  Company Number: 2014HINSPO1000

PATIENT
  Age: 53 Year
  Sex: Male

DRUGS (2)
  1. HYDROXYCODONE (HYDROXYCODONE) [Concomitant]
  2. LEVOCETIRIZINE [Suspect]
     Active Substance: LEVOCETIRIZINE
     Indication: PRODUCT USED FOR UNKNOWN INDICATION

REACTIONS (3)
  - Rash [None]
  - Dyspnoea [None]
  - Atrial fibrillation [None]
